FAERS Safety Report 9204501 (Version 2)
Quarter: 2013Q2

REPORT INFORMATION
  Report Type: Spontaneous
  Country: US (occurrence: None)
  Receive Date: 20120709
  Receipt Date: 20121107
  Transmission Date: 20140414
  Serious: Yes (Other)
  Sender: FDA-Public Use
  Company Number: 2012HGS-003440

PATIENT
  Age: 50 Year
  Sex: Female
  Weight: 74.84 kg

DRUGS (11)
  1. BENLYSTA [Suspect]
     Indication: SYSTEMIC LUPUS ERYTHEMATOSUS
     Dosage: 1 IN 28 D
     Route: 041
     Dates: start: 20120314
  2. SAVELLA (MILNACIPRAN HYDROCHLORIDE) (MILNACIPRAN HYDROCHLORIDE) (MILNACIPRAN HYDROCHLORIDE) [Concomitant]
  3. PLAQUENIL (HYDROXYCHLOROQUINE SULFATE) [Concomitant]
  4. PREDNISONE (PREDNISONE) (PREDNISONE) [Concomitant]
  5. XANAX [Concomitant]
  6. METHOTREXATE (METHOTREXATE) METHOTREXATE) [Concomitant]
  7. ESTRADIOL (ESTRADIOL) (ESTRADIOL) [Concomitant]
  8. RESTASIS (CICLOSPORIN) CICLOSPORIN) [Concomitant]
  9. VITAMIN D (ERGOCALCIFEROL) (ERGOCIFEROL) [Concomitant]
  10. FOLIC ACID (FOLIC ACID) (FOLIC ACID) [Concomitant]
  11. PANTOPRAZOLE (PANTOPRAZOLE SODIUM SESQUIHYDRATE) (PANTOPRAZOLE SODIUM SESQUIHYDRATE) [Concomitant]

REACTIONS (3)
  - Pain [None]
  - Headache [None]
  - Pain [None]
